FAERS Safety Report 7538067-4 (Version None)
Quarter: 2011Q2

REPORT INFORMATION
  Report Type: 
  Country: None (occurrence: None)
  Receive Date: 20110609
  Receipt Date: 20110603
  Transmission Date: 20111010
  Serious: Yes (Hospitalization, Other)
  Sender: FDA-Public Use
  Company Number: JP-CEPHALON-2011001965

PATIENT
  Sex: Male
  Weight: 43 kg

DRUGS (5)
  1. PREDNISOLONE [Concomitant]
     Dates: start: 20110404
  2. BENDAMUSTINE HCL [Suspect]
     Indication: B-CELL LYMPHOMA
     Route: 042
     Dates: start: 20110317, end: 20110318
  3. BENDAMUSTINE HCL [Suspect]
     Route: 042
     Dates: start: 20110414
  4. ACYCLOVIR [Concomitant]
     Dates: start: 20110317
  5. SULFAMETHOXAZOLE AND TRIMETHOPRIM [Concomitant]
     Dates: start: 20110317

REACTIONS (3)
  - DERMATITIS CONTACT [None]
  - RASH [None]
  - RESPIRATORY DISTRESS [None]
